FAERS Safety Report 5845033-3 (Version None)
Quarter: 2008Q3

REPORT INFORMATION
  Report Type: 
  Country: None (occurrence: None)
  Receive Date: 20080813
  Receipt Date: 20080813
  Transmission Date: 20090109
  Serious: Yes (Other)
  Sender: FDA-Public Use
  Company Number: None

PATIENT
  Age: 81 Year
  Sex: Female

DRUGS (1)
  1. FLUOCINONIDE [Suspect]
     Indication: INFLAMMATION
     Dosage: TWICE DAILY TOP
     Route: 061
     Dates: start: 20080811, end: 20080812

REACTIONS (2)
  - BURNING SENSATION [None]
  - PHARMACEUTICAL PRODUCT COMPLAINT [None]
